FAERS Safety Report 18120809 (Version 4)
Quarter: 2021Q1

REPORT INFORMATION
  Report Type: Spontaneous
  Country: US (occurrence: US)
  Receive Date: 20200806
  Receipt Date: 20210106
  Transmission Date: 20210419
  Serious: Yes (Other)
  Sender: FDA-Public Use
  Company Number: US-PFIZER INC-2020297250

PATIENT
  Age: 76 Year
  Sex: Female
  Weight: 87 kg

DRUGS (5)
  1. BOSENTAN. [Concomitant]
     Active Substance: BOSENTAN
     Dosage: 62.5 MG, 2X/DAY
     Route: 048
     Dates: start: 20190613
  2. ECHINACEA [Concomitant]
     Active Substance: ECHINACEA, UNSPECIFIED
     Dosage: UNK
  3. BOSENTAN. [Concomitant]
     Active Substance: BOSENTAN
     Indication: PULMONARY ARTERIAL HYPERTENSION
     Dosage: 62.5 MG, 2X/DAY
     Route: 048
     Dates: start: 20190613
  4. AMLODIPINE BESILATE [Suspect]
     Active Substance: AMLODIPINE BESYLATE
     Indication: PULMONARY ARTERIAL HYPERTENSION
     Dosage: UNK
     Dates: start: 20190613
  5. DIGESTIVE BITTERS [AGRIMONIA EUPATORIA DRY HERB;CINNAMOMUM VERUM STEM [Concomitant]
     Indication: IRRITABLE BOWEL SYNDROME
     Dosage: UNK

REACTIONS (11)
  - Dizziness [Recovered/Resolved]
  - Hypotension [Recovered/Resolved]
  - Vagus nerve disorder [Unknown]
  - Dyspepsia [Unknown]
  - Flatulence [Not Recovered/Not Resolved]
  - Dyspnoea [Recovered/Resolved]
  - Neck injury [Not Recovered/Not Resolved]
  - Weight decreased [Recovered/Resolved]
  - Blood pressure decreased [Recovered/Resolved]
  - Abdominal distension [Not Recovered/Not Resolved]
  - Dyspnoea exertional [Recovered/Resolved]

NARRATIVE: CASE EVENT DATE: 202001
